FAERS Safety Report 12993881 (Version 1)
Quarter: 2016Q4

REPORT INFORMATION
  Report Type: Spontaneous
  Country: FR (occurrence: FR)
  Receive Date: 20161202
  Receipt Date: 20161202
  Transmission Date: 20170207
  Serious: Yes (Hospitalization, Other)
  Sender: FDA-Public Use
  Company Number: FR-PFIZER INC-2016486049

PATIENT
  Age: 43 Year
  Sex: Male

DRUGS (1)
  1. SALAZOPYRINE [Suspect]
     Active Substance: SULFASALAZINE
     Indication: RHEUMATOID ARTHRITIS
     Dosage: UNK
     Route: 048
     Dates: start: 20160903, end: 20160918

REACTIONS (4)
  - Drug reaction with eosinophilia and systemic symptoms [Recovered/Resolved]
  - Hepatocellular injury [Unknown]
  - Cholestasis [Unknown]
  - Epstein-Barr virus infection [Unknown]

NARRATIVE: CASE EVENT DATE: 201609
